FAERS Safety Report 9909027 (Version 3)
Quarter: 2014Q1

REPORT INFORMATION
  Report Type: Report from Study
  Country: US (occurrence: US)
  Receive Date: 20140219
  Receipt Date: 20140220
  Transmission Date: 20141002
  Serious: Yes (Hospitalization, Other)
  Sender: FDA-Public Use
  Company Number: US-JNJFOC-20131216793

PATIENT
  Age: 70 Year
  Sex: Female

DRUGS (7)
  1. REMICADE [Suspect]
     Indication: RHEUMATOID ARTHRITIS
     Dosage: FREQUENCY IS ONCE EVERY FEW MONTHS
     Route: 042
     Dates: start: 20130208, end: 20130208
  2. CORTICOSTEROID [Suspect]
     Indication: PAIN
     Route: 065
     Dates: start: 20130208
  3. HYDROCHLOROTHIAZIDE [Concomitant]
     Indication: BLOOD PRESSURE
     Route: 065
  4. ATENOLOL [Concomitant]
     Indication: BLOOD PRESSURE
     Route: 065
  5. LISINOPRIL [Concomitant]
     Indication: BLOOD PRESSURE
     Route: 065
  6. BABY ASPRIN [Concomitant]
     Route: 065
  7. CALCIUM W/ D [Concomitant]
     Indication: BONE DISORDER
     Route: 065

REACTIONS (3)
  - Loss of consciousness [Unknown]
  - Road traffic accident [Recovered/Resolved]
  - Arrhythmia [Not Recovered/Not Resolved]
